FAERS Safety Report 8330100-5 (Version None)
Quarter: 2012Q2

REPORT INFORMATION
  Report Type: 
  Country: None (occurrence: None)
  Receive Date: 20120502
  Receipt Date: 20120423
  Transmission Date: 20120825
  Serious: Yes (Other)
  Sender: FDA-Public Use
  Company Number: GB-ELI_LILLY_AND_COMPANY-GB201204008938

PATIENT
  Sex: Female

DRUGS (1)
  1. HUMATROPE [Suspect]
     Indication: WEIGHT CONTROL
     Dosage: UNK, UNKNOWN

REACTIONS (2)
  - LEUKAEMIA RECURRENT [None]
  - OFF LABEL USE [None]
